FAERS Safety Report 9343974 (Version 1)
Quarter: 2013Q2

REPORT INFORMATION
  Report Type: Spontaneous
  Country: TW (occurrence: TW)
  Receive Date: 20130612
  Receipt Date: 20130612
  Transmission Date: 20140414
  Serious: Yes (Other)
  Sender: FDA-Public Use
  Company Number: PHHY2013TW058161

PATIENT
  Age: 65 Year
  Sex: Male

DRUGS (1)
  1. CLOZAPINE [Suspect]
     Indication: TARDIVE DYSKINESIA
     Dosage: 100 MG, DAY
     Dates: end: 2008

REACTIONS (6)
  - Diaphragmatic disorder [Recovering/Resolving]
  - Tardive dyskinesia [Recovering/Resolving]
  - Somnolence [Unknown]
  - Fatigue [Unknown]
  - Weight increased [Unknown]
  - Salivary hypersecretion [Unknown]
